FAERS Safety Report 20481402 (Version 1)
Quarter: 2022Q1

REPORT INFORMATION
  Report Type: Report from Study
  Country: US (occurrence: US)
  Receive Date: 20220216
  Receipt Date: 20220216
  Transmission Date: 20220423
  Serious: Yes (Hospitalization)
  Sender: FDA-Public Use
  Company Number: US-VERTEX PHARMACEUTICALS-2022-002850

PATIENT
  Age: 33 Year
  Sex: Female

DRUGS (29)
  1. TRIKAFTA [Suspect]
     Active Substance: ELEXACAFTOR\IVACAFTOR\TEZACAFTOR
     Indication: Cystic fibrosis
     Dosage: 2 TABLETS;AM;ONE TABLET;PM
     Route: 048
     Dates: start: 202112
  2. NEXPLANON [Concomitant]
     Active Substance: ETONOGESTREL
  3. ACYCLOVIR [Concomitant]
     Active Substance: ACYCLOVIR
  4. ALBUTEROL [Concomitant]
     Active Substance: ALBUTEROL
  5. ALBUTEROL SULFATE [Concomitant]
     Active Substance: ALBUTEROL SULFATE
  6. AMITRIPTYLINE [Concomitant]
     Active Substance: AMITRIPTYLINE
  7. AZITHROMYCIN [Concomitant]
     Active Substance: AZITHROMYCIN
  8. BISACODYL [Concomitant]
     Active Substance: BISACODYL
  9. CARVEDILOL [Concomitant]
     Active Substance: CARVEDILOL
  10. CLONIDINE [Concomitant]
     Active Substance: CLONIDINE
  11. CREON [Concomitant]
     Active Substance: PANCRELIPASE AMYLASE\PANCRELIPASE LIPASE\PANCRELIPASE PROTEASE
  12. DOCUSATE [Concomitant]
     Active Substance: DOCUSATE
  13. DRONABINOL [Concomitant]
     Active Substance: DRONABINOL
  14. FISH OIL [Concomitant]
     Active Substance: FISH OIL
  15. GABAPENTIN [Concomitant]
     Active Substance: GABAPENTIN
  16. NIFEDIPINE [Concomitant]
     Active Substance: NIFEDIPINE
  17. NOVOLOG [Concomitant]
     Active Substance: INSULIN ASPART
  18. PANTOPRAZOLE [Concomitant]
     Active Substance: PANTOPRAZOLE
  19. PRAVASTATIN [Concomitant]
     Active Substance: PRAVASTATIN
  20. PREDNISONE [Concomitant]
     Active Substance: PREDNISONE
  21. SENNA TABS [Concomitant]
     Active Substance: SENNOSIDES A AND B
  22. SEVELAMER [Concomitant]
     Active Substance: SEVELAMER
  23. SODIUM CHLORIDE [Concomitant]
     Active Substance: SODIUM CHLORIDE
  24. SULFAMETHOXAZOLE\TRIMETHOPRIM [Concomitant]
     Active Substance: SULFAMETHOXAZOLE\TRIMETHOPRIM
  25. TACROLIMUS [Concomitant]
     Active Substance: TACROLIMUS
  26. TOBRAMYCIN [Concomitant]
     Active Substance: TOBRAMYCIN
  27. TORSEMIDE [Concomitant]
     Active Substance: TORSEMIDE
  28. TRULANCE [Concomitant]
     Active Substance: PLECANATIDE
  29. URSODIOL [Concomitant]
     Active Substance: URSODIOL

REACTIONS (1)
  - COVID-19 [Recovered/Resolved]

NARRATIVE: CASE EVENT DATE: 20220201
